FAERS Safety Report 8757883 (Version 1)
Quarter: 2012Q4

REPORT INFORMATION
  Report Type: 
  Country: US (occurrence: US)
  Receive Date: 20120828
  Receipt Date: 20120828
  Transmission Date: 20130627
  Serious: No
  Sender: FDA-Public Use
  Company Number: US-009507513-1208USA000985

PATIENT

DRUGS (3)
  1. MIRALAX [Suspect]
     Indication: PRODUCT USED FOR UNKNOWN INDICATION
     Dosage: 17 g, qid
     Route: 048
     Dates: start: 20120712
  2. MIRALAX [Suspect]
     Indication: MEDICAL OBSERVATION
     Dosage: 17 g, bid
     Route: 048
     Dates: start: 20120713
  3. MIRALAX [Suspect]
     Dosage: 17 g, qd
     Route: 048
     Dates: start: 20120714, end: 20120716

REACTIONS (2)
  - Bowel movement irregularity [Not Recovered/Not Resolved]
  - Overdose [Unknown]
